FAERS Safety Report 24957455 (Version 1)
Quarter: 2025Q1

REPORT INFORMATION
  Report Type: Spontaneous
  Country: CH (occurrence: CH)
  Receive Date: 20250212
  Receipt Date: 20250212
  Transmission Date: 20250409
  Serious: Yes (Death, Hospitalization)
  Sender: ROCHE
  Company Number: None

PATIENT
  Age: 56 Year
  Sex: Male

DRUGS (5)
  1. ACTEMRA [Suspect]
     Active Substance: TOCILIZUMAB
     Indication: Metastatic malignant melanoma
     Route: 042
     Dates: start: 20240903, end: 20241126
  2. METAMIZOLE [Suspect]
     Active Substance: METAMIZOLE
     Indication: Pain
     Route: 048
  3. OPDUALAG [Suspect]
     Active Substance: NIVOLUMAB\RELATLIMAB-RMBW
     Indication: Metastatic malignant melanoma
     Route: 042
     Dates: start: 20240528, end: 20241029
  4. XGEVA [Concomitant]
     Active Substance: DENOSUMAB
     Route: 042
     Dates: start: 20240528, end: 20241029
  5. FLECTOR TISSUGEL EP [Concomitant]
     Route: 062

REACTIONS (2)
  - Acute hepatic failure [Fatal]
  - Colitis [Fatal]

NARRATIVE: CASE EVENT DATE: 20241201
